FAERS Safety Report 7261373-8 (Version None)
Quarter: 2011Q1

REPORT INFORMATION
  Report Type: 
  Country: None (occurrence: None)
  Receive Date: 20110130
  Receipt Date: 20101020
  Transmission Date: 20110831
  Serious: No
  Sender: FDA-Public Use
  Company Number: US-ABBOTT-10P-163-0680182-00

PATIENT
  Age: 73 Year
  Sex: Male

DRUGS (9)
  1. IRON [Concomitant]
     Indication: PRODUCT USED FOR UNKNOWN INDICATION
  2. HUMIRA [Suspect]
     Indication: PRODUCT USED FOR UNKNOWN INDICATION
     Dates: start: 20100918, end: 20101002
  3. LISINOPRIL [Concomitant]
     Indication: HYPERTENSION
  4. PREDNISONE [Concomitant]
     Indication: ARTHRITIS
  5. XOLAIR [Concomitant]
     Indication: CHRONIC OBSTRUCTIVE PULMONARY DISEASE
     Route: 058
  6. ASA [Concomitant]
     Indication: PRODUCT USED FOR UNKNOWN INDICATION
  7. HYDROXYCHLOROQ [Concomitant]
     Indication: ARTHRITIS
  8. DEPAKOTE [Concomitant]
     Indication: CONVULSION
  9. AMLODIPINE [Concomitant]
     Indication: HYPERTENSION

REACTIONS (1)
  - BRONCHITIS [None]
